FAERS Safety Report 24929995 (Version 9)
Quarter: 2025Q2

REPORT INFORMATION
  Report Type: Spontaneous
  Country: US (occurrence: US)
  Receive Date: 20250205
  Receipt Date: 20250501
  Transmission Date: 20250716
  Serious: No
  Sender: BIOGEN
  Company Number: US-BIOGEN-2025BI01298950

PATIENT
  Sex: Female

DRUGS (3)
  1. VUMERITY [Suspect]
     Active Substance: DIROXIMEL FUMARATE
     Indication: Multiple sclerosis
     Dosage: TITRATION DOSE
     Route: 050
     Dates: start: 20211026, end: 20211102
  2. VUMERITY [Suspect]
     Active Substance: DIROXIMEL FUMARATE
     Dosage: MAINTENANCE DOSE
     Route: 050
     Dates: start: 20211102
  3. VUMERITY [Suspect]
     Active Substance: DIROXIMEL FUMARATE
     Dosage: 1 CAPSULE IN THE MORNING AND 1 CAPSULE AT NIGHT
     Route: 050

REACTIONS (14)
  - Underdose [Not Recovered/Not Resolved]
  - Mobility decreased [Not Recovered/Not Resolved]
  - Balance disorder [Not Recovered/Not Resolved]
  - Memory impairment [Unknown]
  - Gait disturbance [Unknown]
  - Arthropathy [Unknown]
  - Dyspnoea exertional [Unknown]
  - Decreased activity [Unknown]
  - Headache [Unknown]
  - Stress [Unknown]
  - Aphasia [Unknown]
  - Depressed mood [Unknown]
  - Anger [Unknown]
  - Fall [Recovered/Resolved]
